FAERS Safety Report 9094879 (Version 5)
Quarter: 2013Q2

REPORT INFORMATION
  Report Type: Spontaneous
  Country: US (occurrence: US)
  Receive Date: 20130220
  Receipt Date: 20130627
  Transmission Date: 20140414
  Serious: Yes (Hospitalization)
  Sender: FDA-Public Use
  Company Number: US-BIOGENIDEC-2013BI014917

PATIENT
  Age: 30 Year
  Sex: Female
  Weight: 105 kg

DRUGS (17)
  1. TYSABRI [Suspect]
     Indication: CROHN^S DISEASE
     Route: 042
     Dates: start: 20121210, end: 20130205
  2. CORTENEMA [Concomitant]
     Route: 054
  3. CYANOCOBALAMIN [Concomitant]
  4. DIPHENOXYLATE-ATROPINE [Concomitant]
     Route: 048
  5. ERGOCALCIFEROL [Concomitant]
     Route: 048
  6. FOLIC ACID [Concomitant]
     Route: 048
  7. LIBRAX [Concomitant]
     Route: 048
  8. NORCO [Concomitant]
     Route: 048
  9. OPIUM TINCTURE [Concomitant]
  10. TRAMADOL [Concomitant]
     Route: 048
  11. ZYRTEC [Concomitant]
  12. HYOSCYAMINE [Concomitant]
  13. ESTRADIOL [Concomitant]
  14. ZANTAC [Concomitant]
  15. ATARAX [Concomitant]
  16. AMBIEN [Concomitant]
  17. CLINDAMYCIN [Concomitant]

REACTIONS (10)
  - Crohn^s disease [Unknown]
  - Lower gastrointestinal haemorrhage [Not Recovered/Not Resolved]
  - Arthralgia [Recovered/Resolved]
  - Oedema [Recovered/Resolved]
  - Hypokalaemia [Unknown]
  - Iron deficiency anaemia [Unknown]
  - Drug ineffective [Not Recovered/Not Resolved]
  - Arthritis [Unknown]
  - Abasia [Recovered/Resolved]
  - Weight bearing difficulty [Recovered/Resolved]
